FAERS Safety Report 23971385 (Version 3)
Quarter: 2024Q3

REPORT INFORMATION
  Report Type: Report from Study
  Country: US (occurrence: US)
  Receive Date: 20240613
  Receipt Date: 20240715
  Transmission Date: 20241016
  Serious: Yes (Life-Threatening, Hospitalization, Other)
  Sender: MYLAN
  Company Number: US-MYLANLABS-2024M1053794

PATIENT
  Age: 0 Year
  Sex: Male
  Weight: 3.4 kg

DRUGS (25)
  1. SILDENAFIL CITRATE [Suspect]
     Active Substance: SILDENAFIL CITRATE
     Indication: Bronchopulmonary dysplasia
     Dosage: 1.7 MILLIGRAM, TID
     Route: 065
     Dates: start: 20240416, end: 20240417
  2. SILDENAFIL CITRATE [Suspect]
     Active Substance: SILDENAFIL CITRATE
     Dosage: 3.5 MILLIGRAM, TID
     Route: 065
     Dates: start: 20240418, end: 20240420
  3. SILDENAFIL CITRATE [Suspect]
     Active Substance: SILDENAFIL CITRATE
     Dosage: 5.3 MILLIGRAM, TID
     Route: 065
     Dates: start: 20240420, end: 20240422
  4. SILDENAFIL CITRATE [Suspect]
     Active Substance: SILDENAFIL CITRATE
     Dosage: 7.4 MILLIGRAM, TID
     Route: 065
     Dates: start: 20240422, end: 20240424
  5. SILDENAFIL CITRATE [Suspect]
     Active Substance: SILDENAFIL CITRATE
     Dosage: 9.3 MILLIGRAM, TID
     Route: 065
     Dates: start: 20240424, end: 20240426
  6. SILDENAFIL CITRATE [Suspect]
     Active Substance: SILDENAFIL CITRATE
     Dosage: 11.1 MILLIGRAM, TID
     Route: 065
     Dates: start: 20240426, end: 20240428
  7. SILDENAFIL CITRATE [Suspect]
     Active Substance: SILDENAFIL CITRATE
     Dosage: 13 MILLIGRAM, TID
     Route: 065
     Dates: start: 20240428, end: 20240430
  8. SILDENAFIL CITRATE [Suspect]
     Active Substance: SILDENAFIL CITRATE
     Dosage: 17.3 MILLIGRAM, TID
     Route: 065
     Dates: start: 20240430, end: 20240507
  9. SILDENAFIL CITRATE [Suspect]
     Active Substance: SILDENAFIL CITRATE
     Dosage: 18 MILLIGRAM, TID
     Route: 065
     Dates: start: 20240507, end: 20240514
  10. SILDENAFIL CITRATE [Suspect]
     Active Substance: SILDENAFIL CITRATE
     Dosage: 13.5 MILLIGRAM, TID
     Route: 065
     Dates: start: 20240514, end: 20240516
  11. SILDENAFIL CITRATE [Suspect]
     Active Substance: SILDENAFIL CITRATE
     Dosage: 9 MILLIGRAM, TID
     Route: 065
     Dates: start: 20240516, end: 20240516
  12. CAFFEINE [Concomitant]
     Active Substance: CAFFEINE
     Indication: Apnoea
     Dosage: 32 MILLIGRAM, QD
     Route: 048
     Dates: start: 20240428
  13. CAFFEINE [Concomitant]
     Active Substance: CAFFEINE
     Dosage: UNK
     Route: 065
     Dates: start: 20240601, end: 20240601
  14. BUDESONIDE [Concomitant]
     Active Substance: BUDESONIDE
     Dosage: 0.5 MILLIGRAM, BID
     Route: 065
     Dates: start: 20240109
  15. CHOLECALCIFEROL [Concomitant]
     Active Substance: CHOLECALCIFEROL
     Dosage: UNK, QD(200)
     Route: 048
     Dates: start: 20240403
  16. AMOXICILLIN [Concomitant]
     Active Substance: AMOXICILLIN
     Dosage: 220 MILLIGRAM, BID
     Route: 048
     Dates: start: 20210510
  17. ARGININE [Concomitant]
     Active Substance: ARGININE
     Dosage: 1.54 MILLIEQUIVALENT, TID
     Route: 048
     Dates: start: 20210508
  18. CEFTRIAXONE [Concomitant]
     Active Substance: CEFTRIAXONE\CEFTRIAXONE SODIUM
     Dosage: 215.25 MILLIGRAM, QD
     Route: 030
     Dates: start: 20210510
  19. LEVALBUTEROL [Concomitant]
     Active Substance: LEVALBUTEROL
     Indication: Wheezing
     Dosage: 0.31 MILLIGRAM
     Route: 065
     Dates: start: 20210501
  20. LEVALBUTEROL [Concomitant]
     Active Substance: LEVALBUTEROL
     Dosage: 0.31 MILLIGRAM
     Route: 065
     Dates: start: 20240504
  21. POLYETHYLENE GLYCOL [Concomitant]
     Active Substance: POLYETHYLENE GLYCOL
     Indication: Constipation
     Dosage: 1.25 GRAM, QD
     Route: 048
     Dates: start: 20240504
  22. POLYETHYLENE GLYCOL [Concomitant]
     Active Substance: POLYETHYLENE GLYCOL
     Dosage: 4.25 GRAM, QD
     Route: 048
     Dates: start: 20240504, end: 20240601
  23. LORAZEPAM [Concomitant]
     Active Substance: LORAZEPAM
     Dosage: UNK
     Route: 048
     Dates: start: 20240522, end: 20240522
  24. MICONAZOLE [Concomitant]
     Active Substance: MICONAZOLE
     Dosage: UNK, BID(2)
     Route: 061
     Dates: start: 20240522, end: 20240601
  25. SODIUM CHLORIDE [Concomitant]
     Active Substance: SODIUM CHLORIDE
     Dosage: UNK, TID(3)
     Route: 048
     Dates: start: 20240524, end: 20240530

REACTIONS (3)
  - Seizure [Recovered/Resolved]
  - Weaning failure [Recovered/Resolved]
  - Off label use [Unknown]

NARRATIVE: CASE EVENT DATE: 20240416
